FAERS Safety Report 9119658 (Version 1)
Quarter: 2013Q1

REPORT INFORMATION
  Report Type: Report from Study
  Country: FR (occurrence: FR)
  Receive Date: 20130226
  Receipt Date: 20130226
  Transmission Date: 20140127
  Serious: Yes (Hospitalization)
  Sender: FDA-Public Use
  Company Number: FR-ELI_LILLY_AND_COMPANY-FR201104001297

PATIENT
  Age: 62 Year
  Sex: Male
  Weight: 78 kg

DRUGS (8)
  1. GEMCITABINE HYDROCHLORIDE [Suspect]
     Indication: NON-SMALL CELL LUNG CANCER STAGE IV
     Dosage: 2400 MG, UNK
     Dates: start: 20110308, end: 20120329
  2. GEMCITABINE HYDROCHLORIDE [Suspect]
     Dosage: 2400 MG, OTHER
     Dates: start: 20110427
  3. CISPLATIN [Suspect]
     Indication: NON-SMALL CELL LUNG CANCER STAGE IV
     Dosage: 143 MG, UNK
     Dates: start: 20110308
  4. DOMPERIDONE [Concomitant]
     Indication: PROPHYLAXIS OF NAUSEA AND VOMITING
     Dosage: UNK
     Dates: start: 20110308
  5. CRESTOR [Concomitant]
     Indication: PROPHYLAXIS
     Dosage: UNK
     Dates: start: 2000
  6. TEMERIT [Concomitant]
     Indication: HYPERTENSION
     Dosage: UNK
     Dates: start: 2011
  7. ASPEGIC [Concomitant]
     Indication: PROPHYLAXIS
     Dosage: UNK
     Dates: start: 1998, end: 201104
  8. CORTANCYL [Concomitant]
     Indication: PROPHYLAXIS
     Dosage: UNK
     Dates: start: 2000, end: 201104

REACTIONS (1)
  - Diarrhoea [Recovered/Resolved]
